FAERS Safety Report 23295674 (Version 2)
Quarter: 2025Q1

REPORT INFORMATION
  Report Type: Spontaneous
  Country: AU (occurrence: AU)
  Receive Date: 20231214
  Receipt Date: 20250325
  Transmission Date: 20250409
  Serious: Yes (Hospitalization, Other)
  Sender: SANDOZ
  Company Number: AU-002147023-NVSC2023AU084151

PATIENT
  Age: 76 Year
  Sex: Male
  Weight: 97.2 kg

DRUGS (72)
  1. CYCLOPHOSPHAMIDE [Suspect]
     Active Substance: CYCLOPHOSPHAMIDE
     Indication: Chemotherapy
     Route: 042
     Dates: start: 20230315, end: 20230317
  2. FLUDARABINE [Suspect]
     Active Substance: FLUDARABINE PHOSPHATE
     Indication: Chemotherapy
     Route: 042
     Dates: start: 20230315, end: 20230315
  3. FLUDARABINE [Suspect]
     Active Substance: FLUDARABINE PHOSPHATE
     Route: 042
     Dates: start: 20230316, end: 20230317
  4. ALLOPURINOL [Concomitant]
     Active Substance: ALLOPURINOL
     Indication: Chemotherapy side effect prophylaxis
     Route: 065
     Dates: start: 20230316
  5. AMOXICILLIN\CLAVULANIC ACID [Concomitant]
     Active Substance: AMOXICILLIN\CLAVULANIC ACID
     Indication: Cholecystitis chronic
     Route: 065
     Dates: start: 20230316
  6. APIXABAN [Concomitant]
     Active Substance: APIXABAN
     Indication: Deep vein thrombosis
     Route: 065
     Dates: start: 20230426
  7. ASPIRIN [Concomitant]
     Active Substance: ASPIRIN
     Indication: Abdominal pain upper
     Route: 065
     Dates: start: 20230203
  8. ASPIRIN [Concomitant]
     Active Substance: ASPIRIN
     Route: 065
  9. ASPIRIN [Concomitant]
     Active Substance: ASPIRIN
     Route: 065
  10. AZITHROMYCIN [Concomitant]
     Active Substance: AZITHROMYCIN
     Indication: Device related infection
     Route: 065
     Dates: start: 20230328
  11. AZITHROMYCIN [Concomitant]
     Active Substance: AZITHROMYCIN
     Route: 065
  12. BISOPROLOL [Concomitant]
     Active Substance: BISOPROLOL
     Route: 065
  13. BISOPROLOL [Concomitant]
     Active Substance: BISOPROLOL
     Route: 065
  14. BISOPROLOL [Concomitant]
     Active Substance: BISOPROLOL
     Indication: Cardiac failure
     Route: 065
     Dates: start: 2019
  15. BISOPROLOL [Concomitant]
     Active Substance: BISOPROLOL
     Route: 065
  16. CALCITRIOL [Concomitant]
     Active Substance: CALCITRIOL
     Indication: Vitamin D
     Route: 065
     Dates: start: 20230413, end: 20230414
  17. CEFEPIME [Concomitant]
     Active Substance: CEFEPIME HYDROCHLORIDE
     Indication: Neutropenia
     Route: 065
     Dates: start: 20230409
  18. CETIRIZINE HYDROCHLORIDE [Concomitant]
     Active Substance: CETIRIZINE HYDROCHLORIDE
     Indication: Hypersensitivity
     Route: 065
     Dates: start: 20230322
  19. CODEINE [Concomitant]
     Active Substance: CODEINE
     Indication: Diarrhoea
     Route: 065
     Dates: start: 20230331
  20. CHOLECALCIFEROL [Concomitant]
     Active Substance: CHOLECALCIFEROL
     Route: 065
  21. CHOLECALCIFEROL [Concomitant]
     Active Substance: CHOLECALCIFEROL
     Indication: Vitamin D
     Route: 065
     Dates: start: 20230203
  22. DEXAMETHASONE [Concomitant]
     Active Substance: DEXAMETHASONE
     Indication: Plasma cell myeloma
     Route: 065
     Dates: start: 20230228
  23. Eleutherococcus nodiflorus [Concomitant]
     Indication: General physical condition
     Route: 065
     Dates: start: 20230320
  24. ENOXAPARIN [Concomitant]
     Active Substance: ENOXAPARIN
     Indication: Deep vein thrombosis
     Route: 065
     Dates: start: 20230202
  25. FENTANYL [Concomitant]
     Active Substance: FENTANYL
     Indication: Biopsy bone marrow
     Route: 065
     Dates: start: 20230131
  26. FILGRASTIM [Concomitant]
     Active Substance: FILGRASTIM
     Indication: Neutropenia
     Route: 065
     Dates: start: 20230406
  27. FLUCLOXACILLIN [Concomitant]
     Active Substance: FLUCLOXACILLIN
     Indication: Device related infection
     Route: 065
     Dates: start: 20230328
  28. FLUCONAZOLE [Concomitant]
     Active Substance: FLUCONAZOLE
     Route: 065
  29. FLUCONAZOLE [Concomitant]
     Active Substance: FLUCONAZOLE
     Route: 065
  30. FLUCONAZOLE [Concomitant]
     Active Substance: FLUCONAZOLE
     Indication: Deep vein thrombosis
     Route: 065
     Dates: start: 20230328
  31. FUROSEMIDE [Concomitant]
     Active Substance: FUROSEMIDE
     Indication: Oedema peripheral
     Route: 065
     Dates: start: 20230317
  32. FUROSEMIDE [Concomitant]
     Active Substance: FUROSEMIDE
     Indication: Kidney infection
  33. ASIAN GINSENG [Concomitant]
     Active Substance: ASIAN GINSENG
     Indication: General physical condition
     Route: 065
     Dates: start: 20230320
  34. IOHEXOL [Concomitant]
     Active Substance: IOHEXOL
     Indication: Scan with contrast
     Route: 065
     Dates: start: 20230314, end: 20230314
  35. LOPERAMIDE [Concomitant]
     Active Substance: LOPERAMIDE
     Indication: Diarrhoea
     Route: 065
     Dates: start: 20230328
  36. LORATADINE [Concomitant]
     Active Substance: LORATADINE
     Route: 065
  37. LORATADINE [Concomitant]
     Active Substance: LORATADINE
     Indication: Antiallergic therapy
     Route: 065
     Dates: start: 20230320
  38. POLYETHYLENE GLYCOLS [Concomitant]
     Active Substance: POLYETHYLENE GLYCOLS
     Indication: Constipation
     Route: 065
     Dates: start: 20230416
  39. MAGNESIUM [Concomitant]
     Active Substance: MAGNESIUM
     Indication: Hypomagnesaemia
     Route: 065
     Dates: start: 20230328
  40. MAGNESIUM [Concomitant]
     Active Substance: MAGNESIUM
     Route: 065
  41. METOCLOPRAMIDE [Concomitant]
     Active Substance: METOCLOPRAMIDE
     Indication: Diarrhoea
     Route: 065
     Dates: start: 20230316
  42. METRONIDAZOLE [Concomitant]
     Active Substance: METRONIDAZOLE
     Indication: Neutropenia
     Route: 065
     Dates: start: 20230409
  43. MIDAZOLAM [Concomitant]
     Active Substance: MIDAZOLAM
     Indication: Biopsy bone marrow
     Route: 065
     Dates: start: 20230131
  44. MOMETASONE [Concomitant]
     Active Substance: MOMETASONE
     Indication: Product used for unknown indication
     Route: 065
  45. MORPHINE [Concomitant]
     Active Substance: MORPHINE
     Indication: Pain
     Route: 065
     Dates: start: 20230316
  46. NYSTATIN [Concomitant]
     Active Substance: NYSTATIN
     Indication: Oral candidiasis
     Route: 065
     Dates: start: 20230228
  47. ONDANSETRON [Concomitant]
     Active Substance: ONDANSETRON
     Indication: Nausea
     Route: 065
     Dates: start: 20230316
  48. OXYCODONE [Concomitant]
     Active Substance: OXYCODONE
     Indication: Pain
     Route: 065
     Dates: start: 20230314
  49. PALONOSETRON [Concomitant]
     Active Substance: PALONOSETRON
     Indication: Nausea
     Route: 065
     Dates: start: 20230315
  50. PANTOPRAZOLE [Concomitant]
     Active Substance: PANTOPRAZOLE
     Indication: Gastric ulcer
     Route: 065
     Dates: start: 20230315
  51. ACETAMINOPHEN [Concomitant]
     Active Substance: ACETAMINOPHEN
     Indication: Abdominal pain upper
     Route: 065
     Dates: start: 20230202
  52. ACETAMINOPHEN [Concomitant]
     Active Substance: ACETAMINOPHEN
     Route: 065
  53. METHYL SALICYLATE\PEPPERMINT OIL\SODIUM BICARBONATE\SODIUM CHLORIDE [Concomitant]
     Active Substance: METHYL SALICYLATE\PEPPERMINT OIL\SODIUM BICARBONATE\SODIUM CHLORIDE
     Indication: General physical condition
     Route: 065
     Dates: start: 20230316
  54. MEPERIDINE [Concomitant]
     Active Substance: MEPERIDINE
     Indication: Product used for unknown indication
     Route: 065
  55. UNSPECIFIED INGREDIENT [Concomitant]
     Active Substance: UNSPECIFIED INGREDIENT
     Indication: Blood phosphorus
     Route: 065
     Dates: start: 20230402
  56. PIPERACILLIN SODIUM\TAZOBACTAM SODIUM [Concomitant]
     Active Substance: PIPERACILLIN SODIUM\TAZOBACTAM SODIUM
     Indication: Febrile neutropenia
     Route: 065
     Dates: start: 20230328
  57. POTASSIUM CHLORIDE [Concomitant]
     Active Substance: POTASSIUM CHLORIDE
     Indication: Hypokalaemia
     Route: 065
     Dates: start: 20230424, end: 20230424
  58. POTASSIUM CHLORIDE [Concomitant]
     Active Substance: POTASSIUM CHLORIDE
     Route: 065
     Dates: start: 20230420, end: 20230420
  59. SULFAMETHOXAZOLE\TRIMETHOPRIM [Concomitant]
     Active Substance: SULFAMETHOXAZOLE\TRIMETHOPRIM
     Indication: Deep vein thrombosis
     Route: 065
     Dates: start: 20230205
  60. ALBUTEROL [Concomitant]
     Active Substance: ALBUTEROL
     Indication: General physical condition
     Route: 065
     Dates: start: 20230330
  61. SODIUM [Concomitant]
     Active Substance: SODIUM
     Indication: Dyspepsia
     Route: 065
     Dates: start: 20230411
  62. TAMSULOSIN [Concomitant]
     Active Substance: TAMSULOSIN
     Indication: Benign prostatic hyperplasia
     Route: 065
     Dates: start: 20230203
  63. TELMISARTAN [Concomitant]
     Active Substance: TELMISARTAN
     Indication: Hypertension
     Route: 065
     Dates: start: 2019
  64. TOCILIZUMAB [Concomitant]
     Active Substance: TOCILIZUMAB
     Indication: Cytokine release syndrome
     Route: 065
     Dates: start: 20230411, end: 20230411
  65. TOCILIZUMAB [Concomitant]
     Active Substance: TOCILIZUMAB
     Route: 065
  66. TOCILIZUMAB [Concomitant]
     Active Substance: TOCILIZUMAB
     Route: 065
  67. VALACYCLOVIR HYDROCHLORIDE [Concomitant]
     Active Substance: VALACYCLOVIR HYDROCHLORIDE
     Route: 065
  68. VALACYCLOVIR HYDROCHLORIDE [Concomitant]
     Active Substance: VALACYCLOVIR HYDROCHLORIDE
     Indication: Deep vein thrombosis
     Route: 065
     Dates: start: 20230203
  69. VANCOMYCIN [Concomitant]
     Active Substance: VANCOMYCIN
     Indication: Device related infection
     Route: 065
     Dates: start: 20230328, end: 20230415
  70. VANCOMYCIN [Concomitant]
     Active Substance: VANCOMYCIN
     Route: 065
     Dates: start: 20230329
  71. VITAMIN B [Concomitant]
     Active Substance: VITAMIN B
     Indication: Anaemia
     Route: 065
     Dates: start: 20230203
  72. ZINC SULFATE [Concomitant]
     Active Substance: ZINC SULFATE
     Indication: Zinc deficiency
     Route: 065
     Dates: start: 20230203

REACTIONS (3)
  - Staphylococcal bacteraemia [Recovered/Resolved]
  - Pyrexia [Recovered/Resolved]
  - Hypogammaglobulinaemia [Not Recovered/Not Resolved]

NARRATIVE: CASE EVENT DATE: 20230328
